FAERS Safety Report 24243179 (Version 3)
Quarter: 2024Q3

REPORT INFORMATION
  Report Type: Report from Study
  Country: DE (occurrence: DE)
  Receive Date: 20240823
  Receipt Date: 20240905
  Transmission Date: 20241016
  Serious: Yes (Life-Threatening)
  Sender: KYOWA
  Company Number: DE-KYOWAKIRIN-2024KK019738

PATIENT

DRUGS (28)
  1. MOGAMULIZUMAB [Suspect]
     Active Substance: MOGAMULIZUMAB
     Indication: Cutaneous T-cell lymphoma stage II
     Dosage: 83 MG (CYCLE 1 DAY 1,1 MG/KG)
     Route: 065
     Dates: start: 20240718
  2. MOGAMULIZUMAB [Suspect]
     Active Substance: MOGAMULIZUMAB
     Dosage: 83 MG (CYCLE 1 DAY 8,1 MG/KG)
     Route: 065
     Dates: start: 20240725
  3. MOGAMULIZUMAB [Suspect]
     Active Substance: MOGAMULIZUMAB
     Dosage: UNK (CYCLE 1 DAY 15, 0 MG/KG)
     Route: 065
     Dates: start: 20240801
  4. MOGAMULIZUMAB [Suspect]
     Active Substance: MOGAMULIZUMAB
     Dosage: UNK (CYCLE 1 DAY 22, 0 MG/KG)
     Route: 065
     Dates: start: 20240808
  5. MOGAMULIZUMAB [Suspect]
     Active Substance: MOGAMULIZUMAB
     Dosage: UNK (CYCLE 2 DAY 1, 0 MG/KG)
     Route: 065
     Dates: start: 20240815
  6. MOGAMULIZUMAB [Suspect]
     Active Substance: MOGAMULIZUMAB
     Dosage: UNK (CYCLE 2 DAY 15, 0 MG/KG)
     Route: 065
     Dates: start: 20240822
  7. LEVOTHYROXINE SODIUM [Concomitant]
     Active Substance: LEVOTHYROXINE SODIUM
     Indication: Product used for unknown indication
     Dosage: 0.2 MG, QD (ONCE DAILY, NATRIUM TABLETTEN)
     Route: 065
  8. RAMIPRIL [Concomitant]
     Active Substance: RAMIPRIL
     Indication: Product used for unknown indication
     Dosage: 5 MG, QD (ONCE DAILY, TABLETTEN)
     Route: 065
  9. HYDROCHLOROTHIAZIDE [Concomitant]
     Active Substance: HYDROCHLOROTHIAZIDE
     Indication: Product used for unknown indication
     Dosage: 12.5 MG, QD (ONCE DAILY, TABLETTEN)
     Route: 065
  10. CARVEDILOL [Concomitant]
     Active Substance: CARVEDILOL
     Indication: Product used for unknown indication
     Dosage: 50 MG, QD (ONCE DAILY, TABLETTEN)
     Route: 065
  11. ALLOPURINOL [Concomitant]
     Active Substance: ALLOPURINOL
     Indication: Product used for unknown indication
     Dosage: 100 MG, QD (ONCE DAILY, TABLETTEN)
     Route: 065
  12. FAMOTIDINE [Concomitant]
     Active Substance: FAMOTIDINE
     Indication: Product used for unknown indication
     Dosage: 20 MG, QD (ONCE DAILY)
     Route: 065
  13. SITAGLIPTIN [Concomitant]
     Active Substance: SITAGLIPTIN
     Indication: Product used for unknown indication
     Dosage: 100 MG, QD (ONCE DAILY)
     Route: 065
  14. INSULIN GLARGINE [Concomitant]
     Active Substance: INSULIN GLARGINE
     Indication: Product used for unknown indication
     Dosage: UNK, QD (ONCE DAILY, 300 E./3 M, 80 E OTHER, 18 E )
     Route: 065
  15. ALLOPURINOL [Concomitant]
     Active Substance: ALLOPURINOL
     Indication: Product used for unknown indication
     Dosage: 100 MG, QD (ONCE DAILY)
     Route: 065
  16. GABAPENTIN [Concomitant]
     Active Substance: GABAPENTIN
     Indication: Product used for unknown indication
     Dosage: 300 MG, QD (ONCE DAILY)
     Route: 065
     Dates: start: 20240711, end: 20240715
  17. LORATADINE [Concomitant]
     Active Substance: LORATADINE
     Indication: Product used for unknown indication
     Dosage: 10 MG, BID (TWICE DAILY))
     Route: 065
  18. CLEMASTINE [Concomitant]
     Active Substance: CLEMASTINE
     Indication: Product used for unknown indication
     Dosage: 1 MG, QD
     Route: 065
     Dates: start: 20240726, end: 20240806
  19. ACETAMINOPHEN [Concomitant]
     Active Substance: ACETAMINOPHEN
     Indication: Prophylaxis
     Dosage: 1000 MG (0,5H BEFORE MOGA,1000 MG/100 ML)
     Route: 065
     Dates: start: 20240718
  20. ACETAMINOPHEN [Concomitant]
     Active Substance: ACETAMINOPHEN
     Dosage: 100 MG, PRN 100 MG (100 MG/10 ML,AS NEEDED)
     Route: 065
     Dates: start: 20240718
  21. CALCIUM CHLORIDE\MAGNESIUM CHLORIDE\MALIC ACID\POTASSIUM CHLORIDE\SODI [Concomitant]
     Active Substance: CALCIUM CHLORIDE\MAGNESIUM CHLORIDE\MALIC ACID\POTASSIUM CHLORIDE\SODIUM ACETATE\SODIUM CHLORIDE
     Indication: Product used for unknown indication
     Dosage: 1000 ML, PRN (1000ML ECOFAC, AS NEEDED)
     Route: 065
     Dates: start: 20240726, end: 20240727
  22. METAMIZOLE SODIUM [Concomitant]
     Active Substance: METAMIZOLE SODIUM
     Indication: Product used for unknown indication
     Dosage: 1000 MG, PRN (1-WASSER 1000 MG/2 ML, AS NEEDED)
     Route: 065
     Dates: start: 20240726, end: 20240726
  23. PIPERACILLIN AND TAZOBACTAM [Concomitant]
     Active Substance: PIPERACILLIN SODIUM\TAZOBACTAM SODIUM
     Indication: Product used for unknown indication
     Dosage: 4500 MG, PRN (AS NEEDED)
     Route: 065
     Dates: start: 20240726, end: 20240807
  24. PIPERACILLIN AND TAZOBACTAM [Concomitant]
     Active Substance: PIPERACILLIN SODIUM\TAZOBACTAM SODIUM
     Indication: Product used for unknown indication
     Dosage: 40 MG, QD (40 MG/0.4 ML,ONCE DAILY)
     Route: 065
     Dates: start: 20240726
  25. CALCIUM CHLORIDE\MAGNESIUM CHLORIDE\MALIC ACID\POTASSIUM CHLORIDE\SODI [Concomitant]
     Active Substance: CALCIUM CHLORIDE\MAGNESIUM CHLORIDE\MALIC ACID\POTASSIUM CHLORIDE\SODIUM ACETATE\SODIUM CHLORIDE
     Indication: Product used for unknown indication
     Dosage: 500 ML, PRN (ECOFAC, AS NEEDED)
     Route: 065
     Dates: start: 20240728
  26. METAMIZOLE SODIUM [Concomitant]
     Active Substance: METAMIZOLE SODIUM
     Indication: Product used for unknown indication
     Dosage: 500 MG, QID (4 TIMES A DAY)
     Route: 065
     Dates: start: 20240727, end: 20240731
  27. METAMIZOLE SODIUM [Concomitant]
     Active Substance: METAMIZOLE SODIUM
     Dosage: 500 MG, PRN (AS NEEDED)
     Route: 065
     Dates: start: 20240801
  28. CLEMASTINE [Concomitant]
     Active Substance: CLEMASTINE
     Indication: Prophylaxis
     Dosage: 2 MG (2 MG/2 ML,1H BEFORE MOGA)
     Route: 065
     Dates: start: 20240718

REACTIONS (1)
  - Lymphopenia [Recovering/Resolving]

NARRATIVE: CASE EVENT DATE: 20240725
